FAERS Safety Report 4840110-8 (Version None)
Quarter: 2005Q4

REPORT INFORMATION
  Report Type: 
  Country: None (occurrence: None)
  Receive Date: 20051125
  Receipt Date: 20051116
  Transmission Date: 20060501
  Serious: Yes (Hospitalization)
  Sender: FDA-Public Use
  Company Number: 2005PV004497

PATIENT
  Age: 49 Year
  Sex: Female
  Weight: 110.2241 kg

DRUGS (15)
  1. BYETTA [Suspect]
     Indication: DIABETES MELLITUS NON-INSULIN-DEPENDENT
     Dosage: 5 MCG; BID; SC
     Route: 058
     Dates: start: 20051018, end: 20051018
  2. ALTACE [Suspect]
     Indication: DRUG USE FOR UNKNOWN INDICATION
     Dosage: SEE IMAGE
     Dates: start: 20050101, end: 20051018
  3. ALTACE [Suspect]
     Indication: DRUG USE FOR UNKNOWN INDICATION
     Dosage: SEE IMAGE
     Dates: start: 20051020
  4. DIOVAN [Concomitant]
  5. GLUCOPHAGE [Concomitant]
  6. HUMULIN 75/25 [Concomitant]
  7. ACTOS [Concomitant]
  8. LIPITOR [Concomitant]
  9. PREVACID [Concomitant]
  10. ALLEGRA [Concomitant]
  11. EFFEXOR [Concomitant]
  12. ASPIRIN [Concomitant]
  13. PLAVIX [Concomitant]
  14. HYDROCHLOROTHIAZIDE [Concomitant]
  15. IMURAN [Concomitant]

REACTIONS (5)
  - ANAPHYLACTIC REACTION [None]
  - ANGIONEUROTIC OEDEMA [None]
  - CONDITION AGGRAVATED [None]
  - GASTROOESOPHAGEAL REFLUX DISEASE [None]
  - VOMITING [None]
